FAERS Safety Report 15594626 (Version 1)
Quarter: 2018Q4

REPORT INFORMATION
  Report Type: Spontaneous
  Country: US (occurrence: US)
  Receive Date: 20181106
  Receipt Date: 20181106
  Transmission Date: 20190205
  Serious: Yes (Other)
  Sender: FDA-Public Use
  Company Number: US-SA-2018SA162399

PATIENT
  Age: 64 Year
  Sex: Female
  Weight: 139 kg

DRUGS (3)
  1. CARBOPLATIN. [Concomitant]
     Active Substance: CARBOPLATIN
     Indication: CHEMOTHERAPY
     Dosage: UNK UNK, UNK
     Route: 065
  2. TAXOTERE [Suspect]
     Active Substance: DOCETAXEL
     Indication: BREAST CANCER FEMALE
     Dosage: 101.4 ML, Q3W
     Route: 042
     Dates: start: 20130909, end: 20130909
  3. TAXOTERE [Suspect]
     Active Substance: DOCETAXEL
     Dosage: 101.4 ML, Q3W
     Route: 042
     Dates: start: 20140206, end: 20140206

REACTIONS (3)
  - Psychological trauma [Unknown]
  - Alopecia [Not Recovered/Not Resolved]
  - Emotional distress [Unknown]

NARRATIVE: CASE EVENT DATE: 20131020
